FAERS Safety Report 26121989 (Version 1)
Quarter: 2025Q4

REPORT INFORMATION
  Report Type: Spontaneous
  Country: US (occurrence: None)
  Receive Date: 20251204
  Receipt Date: 20251204
  Transmission Date: 20260118
  Serious: Yes (Life-Threatening, Hospitalization, Disabling, Other)
  Sender: FDA-CTU
  Company Number: None

PATIENT
  Age: 46 Year
  Sex: Female
  Weight: 105.75 kg

DRUGS (1)
  1. .DELTA.9-TETRAHYDROCANNABINOL\CANNABIDIOL\HERBALS [Suspect]
     Active Substance: .DELTA.9-TETRAHYDROCANNABINOL\CANNABIDIOL\HERBALS
     Indication: Epilepsy
     Dosage: 600 MG  EVERY 12 HOURS ORAL?
     Route: 048
     Dates: start: 20250813, end: 20250813

REACTIONS (9)
  - Generalised tonic-clonic seizure [None]
  - Loss of consciousness [None]
  - Narcolepsy [None]
  - Confusional state [None]
  - Dissociation [None]
  - Brain injury [None]
  - Product communication issue [None]
  - Product use issue [None]
  - Product advertising issue [None]

NARRATIVE: CASE EVENT DATE: 20250814
